FAERS Safety Report 18453869 (Version 1)
Quarter: 2020Q4

REPORT INFORMATION
  Report Type: Spontaneous
  Country: CN (occurrence: CN)
  Receive Date: 20201102
  Receipt Date: 20201102
  Transmission Date: 20210114
  Serious: Yes (Other)
  Sender: FDA-Public Use
  Company Number: CN-ASTRAZENECA-2020SF25052

PATIENT
  Age: 72 Year
  Sex: Male

DRUGS (21)
  1. ROSUVASTATIN. [Suspect]
     Active Substance: ROSUVASTATIN
     Dosage: 10.0MG UNKNOWN
     Route: 048
  2. WARFARIN SODIUM. [Concomitant]
     Active Substance: WARFARIN SODIUM
     Route: 048
     Dates: start: 20200909
  3. RAMIPRIL. [Concomitant]
     Active Substance: RAMIPRIL
     Route: 048
  4. PREDNISONE ACETATE [Concomitant]
     Active Substance: PREDNISONE ACETATE
     Route: 048
     Dates: start: 20200915
  5. DAXI [Concomitant]
     Route: 048
  6. TICARCIN (TRANSLITERATION) [Suspect]
     Active Substance: TICARCILLIN DISODIUM
     Route: 048
  7. FUROSEMIDE. [Suspect]
     Active Substance: FUROSEMIDE
     Route: 048
  8. ALPROSTADINE [Suspect]
     Active Substance: ALPROSTADIL
     Route: 048
  9. LORATADINE. [Suspect]
     Active Substance: LORATADINE
     Dosage: 10.0MG UNKNOWN
     Route: 048
  10. FAVALIN [HERBALS] [Suspect]
     Active Substance: HERBALS
     Route: 048
  11. RABEPRAZOLE [Concomitant]
     Active Substance: RABEPRAZOLE
     Route: 048
  12. FUROSEMIDE. [Suspect]
     Active Substance: FUROSEMIDE
     Dosage: 2.0ML UNKNOWN
     Route: 065
  13. TAMSULOSIN [Suspect]
     Active Substance: TAMSULOSIN
     Route: 048
  14. PREDNISONE ACETATE [Concomitant]
     Active Substance: PREDNISONE ACETATE
     Route: 048
     Dates: start: 20200911
  15. FORXIGA [Suspect]
     Active Substance: DAPAGLIFLOZIN
     Indication: DIABETES MELLITUS
     Route: 048
  16. WARFARIN SODIUM. [Concomitant]
     Active Substance: WARFARIN SODIUM
     Route: 048
  17. METFORMIN [Concomitant]
     Active Substance: METFORMIN HYDROCHLORIDE
     Route: 048
     Dates: start: 20200912
  18. METFORMIN [Concomitant]
     Active Substance: METFORMIN HYDROCHLORIDE
     Route: 048
  19. ACARBOSE. [Suspect]
     Active Substance: ACARBOSE
     Indication: DIABETES MELLITUS
     Route: 048
  20. XILEBAO [Concomitant]
     Route: 048
  21. FEBUXOSTAT. [Concomitant]
     Active Substance: FEBUXOSTAT
     Route: 048

REACTIONS (1)
  - Blood glucose fluctuation [Unknown]
